FAERS Safety Report 4579417-0 (Version None)
Quarter: 2005Q1

REPORT INFORMATION
  Report Type: 
  Country: None (occurrence: None)
  Receive Date: 20050209
  Receipt Date: 20050125
  Transmission Date: 20050727
  Serious: Yes (Other)
  Sender: FDA-Public Use
  Company Number: USA050189175

PATIENT
  Age: 70 Year
  Sex: Female
  Weight: 102 kg

DRUGS (1)
  1. HUMULIN 70/30 [Suspect]
     Dates: start: 19980101

REACTIONS (4)
  - DIALYSIS [None]
  - HEARING IMPAIRED [None]
  - RENAL FAILURE [None]
  - VISUAL ACUITY REDUCED [None]
